FAERS Safety Report 8455365-0 (Version None)
Quarter: 2012Q2

REPORT INFORMATION
  Report Type: 
  Country: None (occurrence: None)
  Receive Date: 20120621
  Receipt Date: 20120611
  Transmission Date: 20120825
  Serious: Yes (Life-Threatening, Hospitalization, Other)
  Sender: FDA-Public Use
  Company Number: US-SHIONOGI, INC-2012000178

PATIENT

DRUGS (3)
  1. VYVANSE [Concomitant]
     Dosage: 40 MG, QD
     Route: 048
     Dates: start: 20110101, end: 20111001
  2. KAPVAY [Suspect]
     Indication: ATTENTION DEFICIT/HYPERACTIVITY DISORDER
     Dosage: 0.1 MG, BID
     Route: 048
     Dates: start: 20110802, end: 20110101
  3. VYVANSE [Concomitant]
     Dosage: 30 MG, QD
     Route: 048
     Dates: start: 20110531, end: 20110101

REACTIONS (6)
  - MOOD SWINGS [None]
  - CRYING [None]
  - SUICIDE ATTEMPT [None]
  - OPPOSITIONAL DEFIANT DISORDER [None]
  - AGGRESSION [None]
  - DEPRESSION [None]
